FAERS Safety Report 10911779 (Version 1)
Quarter: 2015Q1

REPORT INFORMATION
  Report Type: Spontaneous
  Country: CO (occurrence: None)
  Receive Date: 20150310
  Receipt Date: 20150310
  Transmission Date: 20150721
  Serious: Yes (Disabling)
  Sender: FDA-Public Use
  Company Number: None

PATIENT
  Age: 88 Year
  Sex: Male
  Weight: 63 kg

DRUGS (1)
  1. AMITRIPTYLINE [Suspect]
     Active Substance: AMITRIPTYLINE
     Indication: DEPRESSION
     Route: 048

REACTIONS (18)
  - Patient restraint [None]
  - Rash macular [None]
  - Incoherent [None]
  - Agitation [None]
  - Speech disorder [None]
  - Femur fracture [None]
  - Libido decreased [None]
  - Loss of consciousness [None]
  - Hypoaesthesia [None]
  - Intestinal obstruction [None]
  - Fall [None]
  - Hallucination [None]
  - Disorientation [None]
  - Abnormal behaviour [None]
  - Initial insomnia [None]
  - Peripheral ischaemia [None]
  - Constipation [None]
  - Dizziness [None]

NARRATIVE: CASE EVENT DATE: 20140127
